FAERS Safety Report 8881114 (Version 1)
Quarter: 2012Q4

REPORT INFORMATION
  Report Type: 
  Country: HK (occurrence: HK)
  Receive Date: 20121031
  Receipt Date: 20121031
  Transmission Date: 20130627
  Serious: Yes (Other)
  Sender: FDA-Public Use
  Company Number: HK-JNJFOC-20121011371

PATIENT
  Age: 67 Year
  Sex: Male

DRUGS (8)
  1. HALOPERIDOL [Suspect]
     Indication: MUSCLE SPASMS
     Route: 065
  2. HALOPERIDOL [Suspect]
     Indication: MUSCLE SPASMS
     Route: 065
  3. HALOPERIDOL [Suspect]
     Indication: MUSCLE SPASMS
     Route: 065
     Dates: start: 2001
  4. HALOPERIDOL [Suspect]
     Indication: BLEPHAROSPASM
     Route: 065
  5. HALOPERIDOL [Suspect]
     Indication: BLEPHAROSPASM
     Route: 065
  6. HALOPERIDOL [Suspect]
     Indication: BLEPHAROSPASM
     Route: 065
     Dates: start: 2001
  7. TRIHEXYPHENIDYL [Concomitant]
     Indication: PARKINSONISM
     Route: 065
     Dates: start: 2001
  8. BOTULINUM TOXIN [Concomitant]
     Route: 065

REACTIONS (13)
  - Extrapyramidal disorder [Not Recovered/Not Resolved]
  - Dementia with Lewy bodies [Unknown]
  - Speech disorder [Unknown]
  - Fall [Unknown]
  - Hallucination, visual [Unknown]
  - Memory impairment [Unknown]
  - Activities of daily living impaired [Unknown]
  - Gait disturbance [Unknown]
  - Cyclothymic disorder [Unknown]
  - Cogwheel rigidity [Unknown]
  - Urinary tract infection [Unknown]
  - Humerus fracture [Unknown]
  - Tremor [Not Recovered/Not Resolved]
